FAERS Safety Report 10168086 (Version 1)
Quarter: 2014Q2

REPORT INFORMATION
  Report Type: Spontaneous
  Country: US (occurrence: US)
  Receive Date: 20140512
  Receipt Date: 20140512
  Transmission Date: 20141212
  Serious: Yes (Life-Threatening, Hospitalization)
  Sender: FDA-Public Use
  Company Number: US-ACTAVIS-2014-09741

PATIENT
  Age: 57 Year
  Sex: Female

DRUGS (4)
  1. ALPRAZOLAM (AELLC) [Suspect]
     Indication: SUICIDE ATTEMPT
     Dosage: UNKNOWN
     Route: 065
  2. DABIGATRAN [Suspect]
     Indication: SUICIDE ATTEMPT
     Dosage: 11.25 G, TOTAL (75 PILLS)
     Route: 048
  3. DABIGATRAN [Suspect]
     Indication: PROPHYLAXIS
  4. METOPROLOL [Concomitant]
     Indication: ATRIAL FIBRILLATION
     Dosage: 100 MG, UNK
     Route: 065

REACTIONS (3)
  - Coma [Unknown]
  - Suicide attempt [Unknown]
  - Intentional overdose [Unknown]
